FAERS Safety Report 4835475-7 (Version None)
Quarter: 2005Q4

REPORT INFORMATION
  Report Type: 
  Country: None (occurrence: None)
  Receive Date: 20051122
  Receipt Date: 20051122
  Transmission Date: 20060501
  Serious: Yes (Hospitalization)
  Sender: FDA-Public Use
  Company Number: None

PATIENT
  Sex: Male

DRUGS (3)
  1. FLUDARABINE [Suspect]
     Indication: NON-HODGKIN'S LYMPHOMA
     Dosage: 57 MG  DAILY  IV DRIP
     Route: 041
     Dates: start: 20040115, end: 20040119
  2. MELPHALAN [Suspect]
     Indication: NON-HODGKIN'S LYMPHOMA
     Dosage: 266 MG   ONCE   IV DRIP
     Route: 041
     Dates: start: 20040120, end: 20040120
  3. CAMPATH [Concomitant]

REACTIONS (5)
  - BLOOD CULTURE POSITIVE [None]
  - CATHETER RELATED INFECTION [None]
  - PYREXIA [None]
  - SINUS DISORDER [None]
  - STAPHYLOCOCCAL INFECTION [None]
